FAERS Safety Report 5813377-7 (Version None)
Quarter: 2008Q3

REPORT INFORMATION
  Report Type: 
  Country: None (occurrence: None)
  Receive Date: 20080717
  Receipt Date: 20080707
  Transmission Date: 20090109
  Serious: Yes (Other)
  Sender: FDA-Public Use
  Company Number: US-ROCHE-538555

PATIENT
  Sex: Female

DRUGS (5)
  1. PEG-INTERFERON A-2A (RO 25-8310) [Suspect]
     Dosage: FORM: PRE-FILLED SYRINGE (PFS)
     Route: 065
     Dates: start: 20070907
  2. RIBAVIRIN [Suspect]
     Route: 065
     Dates: start: 20070907
  3. RIBAVIRIN [Suspect]
     Dosage: DIVIDED DOSES
     Route: 065
  4. RIBAVIRIN [Suspect]
     Route: 065
  5. RIBAVIRIN [Suspect]
     Dosage: DIVIDED DOSES
     Route: 065

REACTIONS (3)
  - ANAEMIA [None]
  - BLOOD SODIUM DECREASED [None]
  - WHITE BLOOD CELL COUNT DECREASED [None]
